FAERS Safety Report 9749853 (Version 1)
Quarter: 2013Q4

REPORT INFORMATION
  Report Type: Spontaneous
  Country: CH (occurrence: CH)
  Receive Date: 20131212
  Receipt Date: 20131212
  Transmission Date: 20140711
  Serious: Yes (Other)
  Sender: FDA-Public Use
  Company Number: CH-BRISTOL-MYERS SQUIBB COMPANY-19873413

PATIENT
  Age: 33 Year
  Sex: Female

DRUGS (2)
  1. ABILIFY [Suspect]
     Dates: start: 20130211, end: 2013
  2. CIPRALEX [Suspect]
     Dosage: 29JAN13?29JAN13
     Dates: start: 20130122, end: 20130225

REACTIONS (3)
  - Foetal growth restriction [Unknown]
  - Oligohydramnios [Unknown]
  - Pregnancy [Recovered/Resolved]
